FAERS Safety Report 4665718-4 (Version None)
Quarter: 2005Q2

REPORT INFORMATION
  Report Type: 
  Country: None (occurrence: None)
  Receive Date: 20050519
  Receipt Date: 20050512
  Transmission Date: 20051028
  Serious: Yes (Hospitalization)
  Sender: FDA-Public Use
  Company Number: MY-BOEHRINGER INGELHEIM PHARMACEUTICALS, INC.-2005-BP-08100MD

PATIENT
  Sex: Male
  Weight: 86.5 kg

DRUGS (11)
  1. MICARDIS [Suspect]
     Indication: DIABETIC NEUROPATHY
     Route: 048
     Dates: start: 20041116
  2. PLACEBO (MATCHING VALSARTAN) [Suspect]
     Indication: DIABETIC NEUROPATHY
     Route: 048
     Dates: start: 20041116
  3. ASPIRIN [Suspect]
     Indication: PROPHYLAXIS
     Route: 048
  4. FRUSEMIDE [Concomitant]
     Indication: OEDEMA PERIPHERAL
     Route: 048
     Dates: start: 20041130
  5. DIAMICRON MR [Concomitant]
     Indication: DIABETES MELLITUS
     Route: 048
  6. AMARYL [Concomitant]
     Indication: DIABETES MELLITUS
     Route: 048
     Dates: start: 20041011
  7. METOPROLOL [Concomitant]
     Indication: HYPERTENSION
     Route: 048
     Dates: start: 20041018
  8. DAFLON [Concomitant]
     Indication: HAEMORRHOIDS
     Dates: start: 20050205
  9. ALLOPURINOL [Concomitant]
     Indication: HYPERURICAEMIA
  10. PRAVASTATIN [Concomitant]
     Indication: HYPERLIPIDAEMIA
  11. LACTULOSE [Concomitant]
     Indication: HAEMORRHOIDS
     Dates: start: 20050205

REACTIONS (1)
  - ANAEMIA [None]
